FAERS Safety Report 9770111 (Version 2)
Quarter: 2013Q4

REPORT INFORMATION
  Report Type: Spontaneous
  Country: US (occurrence: US)
  Receive Date: 20131218
  Receipt Date: 20131218
  Transmission Date: 20140711
  Serious: No
  Sender: FDA-Public Use
  Company Number: US-VERTEX PHARMACEUTICALS INC-AE-2011-000859

PATIENT
  Sex: 0

DRUGS (5)
  1. INCIVEK [Suspect]
     Indication: HEPATITIS C
     Route: 048
     Dates: start: 20110729
  2. PEGINTRON [Concomitant]
     Indication: HEPATITIS C
     Route: 058
     Dates: start: 20110729
  3. RIBAVIRIN [Concomitant]
     Indication: HEPATITIS C
     Route: 048
     Dates: start: 20110729
  4. CALTRATE/D [Concomitant]
  5. VITAMIN D [Concomitant]

REACTIONS (6)
  - Dysphonia [Recovered/Resolved]
  - Chills [Recovered/Resolved]
  - Pyrexia [Recovered/Resolved]
  - Headache [Recovered/Resolved]
  - Malaise [Unknown]
  - Fatigue [Recovered/Resolved]
